FAERS Safety Report 9893732 (Version 1)
Quarter: 2014Q1

REPORT INFORMATION
  Report Type: Spontaneous
  Country: JP (occurrence: JP)
  Receive Date: 20140213
  Receipt Date: 20140213
  Transmission Date: 20141002
  Serious: Yes (Hospitalization)
  Sender: FDA-Public Use
  Company Number: JP-PFIZER INC-2014040121

PATIENT
  Age: 83 Year
  Sex: Female
  Weight: 38.9 kg

DRUGS (3)
  1. CORTRIL [Suspect]
     Dosage: 30 MG, DAILY
     Route: 048
  2. CORTRIL [Suspect]
     Dosage: 15 MG, DAILY
     Route: 048
  3. CORTRIL [Suspect]
     Dosage: 10 MG, DAILY
     Route: 048

REACTIONS (5)
  - Drug dose omission [Recovering/Resolving]
  - Adrenal disorder [Recovering/Resolving]
  - Blood potassium decreased [Unknown]
  - Blood glucose decreased [Unknown]
  - Malaise [Not Recovered/Not Resolved]
